FAERS Safety Report 13786089 (Version 1)
Quarter: 2017Q3

REPORT INFORMATION
  Report Type: Spontaneous
  Country: US (occurrence: US)
  Receive Date: 20170725
  Receipt Date: 20170725
  Transmission Date: 20171127
  Serious: Yes (Hospitalization)
  Sender: FDA-Public Use
  Company Number: None

PATIENT
  Age: 43 Year
  Sex: Female
  Weight: 82.2 kg

DRUGS (22)
  1. OMEPRAZOLE. [Concomitant]
     Active Substance: OMEPRAZOLE
  2. EPCLUSA [Suspect]
     Active Substance: SOFOSBUVIR\VELPATASVIR
     Indication: HEPATITIS C
     Route: 048
     Dates: start: 20170317, end: 20170609
  3. CYCLOBEZAPRINE [Concomitant]
  4. METFORMIN [Concomitant]
     Active Substance: METFORMIN HYDROCHLORIDE
  5. RIFAXIMIN [Suspect]
     Active Substance: RIFAXIMIN
  6. MYLANTA [Concomitant]
     Active Substance: ALUMINUM HYDROXIDE\DIMETHICONE\MAGNESIUM HYDROXIDE
  7. GLIPIZIDE. [Concomitant]
     Active Substance: GLIPIZIDE
  8. SPIRONOLACTONE. [Concomitant]
     Active Substance: SPIRONOLACTONE
  9. ZOFRAN [Concomitant]
     Active Substance: ONDANSETRON HYDROCHLORIDE
  10. MAGNESIUM [Concomitant]
     Active Substance: MAGNESIUM
  11. OMEGA 3 FISH OIL [Concomitant]
     Active Substance: FISH OIL\OMEGA-3 FATTY ACIDS
  12. QUETIAPINE. [Concomitant]
     Active Substance: QUETIAPINE
  13. LIDODERM [Concomitant]
     Active Substance: LIDOCAINE
  14. NICOTINE GUM [Concomitant]
     Active Substance: NICOTINE
  15. SUCRALFATE. [Concomitant]
     Active Substance: SUCRALFATE
  16. ESCITALOPRAM [Concomitant]
     Active Substance: ESCITALOPRAM OXALATE
  17. FUROSEMIDE. [Concomitant]
     Active Substance: FUROSEMIDE
  18. TRAMADOL. [Concomitant]
     Active Substance: TRAMADOL
  19. NORTRIPTYLINE [Concomitant]
     Active Substance: NORTRIPTYLINE
  20. FERROUS SULFATE. [Concomitant]
     Active Substance: FERROUS SULFATE
  21. GABAPENTIN. [Concomitant]
     Active Substance: GABAPENTIN
  22. MULTIVITAMIN [Concomitant]
     Active Substance: VITAMINS

REACTIONS (5)
  - Dizziness [None]
  - Lethargy [None]
  - Hypoxia [None]
  - Asterixis [None]
  - Feeling abnormal [None]

NARRATIVE: CASE EVENT DATE: 20170627
